FAERS Safety Report 16522144 (Version 1)
Quarter: 2019Q3

REPORT INFORMATION
  Report Type: Spontaneous
  Country: GB (occurrence: GB)
  Receive Date: 20190703
  Receipt Date: 20190703
  Transmission Date: 20191004
  Serious: Yes (Other)
  Sender: FDA-Public Use
  Company Number: GB-TEVA-2019-GB-1071264

PATIENT
  Sex: Female
  Weight: 79 kg

DRUGS (1)
  1. SALBUTAMOL [Suspect]
     Active Substance: ALBUTEROL
     Route: 055

REACTIONS (2)
  - Hypersensitivity [Unknown]
  - Dyspnoea [Recovered/Resolved]
